FAERS Safety Report 10069978 (Version 1)
Quarter: 2014Q2

REPORT INFORMATION
  Report Type: Spontaneous
  Country: GB (occurrence: GB)
  Receive Date: 20140410
  Receipt Date: 20140410
  Transmission Date: 20141212
  Serious: Yes (Other)
  Sender: FDA-Public Use
  Company Number: GB-AMGEN-GBRSP2014024318

PATIENT
  Age: 85 Year
  Sex: Female

DRUGS (4)
  1. PROLIA [Suspect]
     Indication: PRODUCT USED FOR UNKNOWN INDICATION
     Dosage: UNK
     Route: 065
     Dates: start: 2013
  2. CALCICHEW D3 [Concomitant]
     Indication: OSTEOPOROSIS
     Dosage: UNK
     Route: 048
     Dates: start: 2010
  3. CO-CODAMOL [Concomitant]
     Indication: MUSCULOSKELETAL PAIN
     Dosage: UNK
     Route: 048
     Dates: start: 2009
  4. OMEPRAZOLE [Concomitant]
     Indication: GASTRITIS
     Dosage: 20 MG, UNK
     Route: 048
     Dates: start: 2010

REACTIONS (4)
  - Memory impairment [Not Recovered/Not Resolved]
  - Depressed mood [Not Recovered/Not Resolved]
  - Malaise [Not Recovered/Not Resolved]
  - Fatigue [Not Recovered/Not Resolved]
